FAERS Safety Report 10355368 (Version 2)
Quarter: 2014Q3

REPORT INFORMATION
  Report Type: Spontaneous
  Country: US (occurrence: None)
  Receive Date: 20140729
  Receipt Date: 20140805
  Transmission Date: 20150326
  Serious: Yes (Other)
  Sender: FDA-Public Use
  Company Number: 2014-US-001765

PATIENT
  Age: 33 Year
  Sex: Female
  Weight: 68.9 kg

DRUGS (4)
  1. XYREM [Suspect]
     Active Substance: SODIUM OXYBATE
     Indication: SOMNOLENCE
     Route: 048
     Dates: start: 201101, end: 2011
  2. CONCERTA (METHYLPHERIDATE HYDROCHLORIDE) [Concomitant]
  3. PLAQUENIL [Concomitant]
     Active Substance: HYDROXYCHLOROQUINE SULFATE
  4. XYREM [Suspect]
     Active Substance: SODIUM OXYBATE
     Indication: NARCOLEPSY
     Route: 048
     Dates: start: 201101, end: 2011

REACTIONS (3)
  - Therapeutic response changed [None]
  - Weight decreased [None]
  - Sjogren^s syndrome [None]

NARRATIVE: CASE EVENT DATE: 2011
